FAERS Safety Report 19265734 (Version 3)
Quarter: 2021Q3

REPORT INFORMATION
  Report Type: Spontaneous
  Country: BR (occurrence: BR)
  Receive Date: 20210518
  Receipt Date: 20210804
  Transmission Date: 20211014
  Serious: Yes (Hospitalization)
  Sender: FDA-Public Use
  Company Number: BR-BIOGEN-2020BI00935268

PATIENT
  Age: 41 Year
  Sex: Female

DRUGS (4)
  1. AVONEX PEN [Suspect]
     Active Substance: INTERFERON BETA-1A
  2. AVONEX PEN [Suspect]
     Active Substance: INTERFERON BETA-1A
     Indication: MULTIPLE SCLEROSIS
     Route: 030
     Dates: start: 201709
  3. AVONEX PEN [Suspect]
     Active Substance: INTERFERON BETA-1A
     Route: 030
     Dates: start: 201709
  4. AVONEX PEN [Suspect]
     Active Substance: INTERFERON BETA-1A
     Route: 030
     Dates: start: 201710, end: 20210429

REACTIONS (4)
  - Injection site haematoma [Unknown]
  - Cellulitis [Not Recovered/Not Resolved]
  - Varicose vein [Not Recovered/Not Resolved]
  - Abscess limb [Recovered/Resolved]

NARRATIVE: CASE EVENT DATE: 2020
